FAERS Safety Report 5089710-3 (Version None)
Quarter: 2006Q3

REPORT INFORMATION
  Report Type: 
  Country: None (occurrence: None)
  Receive Date: 20060823
  Receipt Date: 20060807
  Transmission Date: 20061208
  Serious: Yes (Other)
  Sender: FDA-Public Use
  Company Number: CHPA2006US07844

PATIENT
  Age: 42 Year
  Sex: Male
  Weight: 106.6 kg

DRUGS (5)
  1. NICOTINE [Suspect]
     Indication: SMOKING CESSATION THERAPY
     Dosage: SEE IMAGE
     Route: 062
     Dates: start: 20060801, end: 20060801
  2. NICOTINE [Suspect]
     Indication: SMOKING CESSATION THERAPY
     Dosage: SEE IMAGE
     Route: 062
     Dates: start: 20060801
  3. XANAX [Concomitant]
  4. BUSPAR [Concomitant]
  5. ANTIHYPERTENSIVES (NO INGREDIENTS/SUBSTANCES) [Concomitant]

REACTIONS (4)
  - FEELING JITTERY [None]
  - NERVOUSNESS [None]
  - PANIC ATTACK [None]
  - TREATMENT NONCOMPLIANCE [None]
